FAERS Safety Report 14843713 (Version 1)
Quarter: 2018Q2

REPORT INFORMATION
  Report Type: Report from Study
  Country: US (occurrence: US)
  Receive Date: 20180503
  Receipt Date: 20180503
  Transmission Date: 20180711
  Serious: Yes (Other)
  Sender: FDA-Public Use
  Company Number: PHEH2018US015375

PATIENT
  Sex: Male

DRUGS (4)
  1. RYDAPT [Suspect]
     Active Substance: MIDOSTAURIN
     Indication: PRODUCT USED FOR UNKNOWN INDICATION
     Dosage: 50 MG, QD
     Route: 065
     Dates: start: 201712
  2. RYDAPT [Suspect]
     Active Substance: MIDOSTAURIN
     Dosage: 200 MG, QD
     Route: 065
     Dates: start: 201802
  3. SPRYCEL [Suspect]
     Active Substance: DASATINIB
     Indication: PRODUCT USED FOR UNKNOWN INDICATION
     Route: 065
  4. PREDNISONE. [Concomitant]
     Active Substance: PREDNISONE
     Indication: PRODUCT USED FOR UNKNOWN INDICATION
     Route: 065

REACTIONS (6)
  - Ocular hyperaemia [Unknown]
  - Eye haemorrhage [Recovering/Resolving]
  - Glycosylated haemoglobin increased [Unknown]
  - Nausea [Unknown]
  - Urinary retention [Unknown]
  - Blood glucose abnormal [Recovered/Resolved]
